FAERS Safety Report 7823602-9 (Version None)
Quarter: 2011Q4

REPORT INFORMATION
  Report Type: 
  Country: None (occurrence: None)
  Receive Date: 20111019
  Receipt Date: 20111014
  Transmission Date: 20120403
  Serious: Yes (Death)
  Sender: FDA-Public Use
  Company Number: JP-PFIZER INC-2011211548

PATIENT
  Age: 40 Year
  Sex: Female
  Weight: 71 kg

DRUGS (13)
  1. CELECOXIB [Concomitant]
  2. MUCOSTA [Concomitant]
  3. ZYPREXA [Suspect]
     Indication: DEPRESSION
     Dosage: 2.5 MG, 1X/DAY
     Route: 048
     Dates: start: 20110611, end: 20110701
  4. METHOTREXATE [Concomitant]
     Dosage: UNK
  5. FOLIC ACID [Concomitant]
  6. AKINETON [Concomitant]
  7. RABEPRAZOLE SODIUM [Concomitant]
  8. ROHYPNOL [Concomitant]
  9. ENBREL [Concomitant]
     Indication: RHEUMATOID ARTHRITIS
     Dosage: UNK
     Route: 058
  10. ALPRAZOLAM [Concomitant]
  11. ZOLOFT [Suspect]
     Indication: DEPRESSION
     Dosage: 25 MG, 2X/DAY
     Route: 048
     Dates: start: 20110528
  12. EURODIN [Concomitant]
  13. SEROQUEL [Suspect]
     Indication: DEPRESSION
     Dosage: 25 MG, 1X/DAY
     Route: 048
     Dates: start: 20110530, end: 20110701

REACTIONS (1)
  - NEUROLEPTIC MALIGNANT SYNDROME [None]
